FAERS Safety Report 7458492-X (Version None)
Quarter: 2011Q2

REPORT INFORMATION
  Report Type: 
  Country: None (occurrence: None)
  Receive Date: 20110504
  Receipt Date: 20110503
  Transmission Date: 20111010
  Serious: Yes (Hospitalization)
  Sender: FDA-Public Use
  Company Number: DE-ABBOTT-11P-062-0723176-00

PATIENT
  Sex: Female
  Weight: 110 kg

DRUGS (2)
  1. HUMIRA [Suspect]
     Indication: PSORIATIC ARTHROPATHY
     Route: 058
     Dates: start: 20100906
  2. HUMIRA [Suspect]
     Route: 058
     Dates: start: 20110428

REACTIONS (1)
  - CARPAL TUNNEL SYNDROME [None]
